APPROVED DRUG PRODUCT: LIDOCAINE HYDROCHLORIDE
Active Ingredient: LIDOCAINE HYDROCHLORIDE
Strength: 1%
Dosage Form/Route: INJECTABLE;INJECTION
Application: A091564 | Product #001
Applicant: AMERICAN REGENT INC
Approved: Aug 14, 2015 | RLD: No | RS: No | Type: DISCN